FAERS Safety Report 5915200-9 (Version None)
Quarter: 2008Q4

REPORT INFORMATION
  Report Type: 
  Country: None (occurrence: None)
  Receive Date: 20081010
  Receipt Date: 20081002
  Transmission Date: 20090506
  Serious: Yes (Other)
  Sender: FDA-Public Use
  Company Number: US-JNJFOC-20081001165

PATIENT
  Sex: Male
  Weight: 99.79 kg

DRUGS (4)
  1. RISPERDAL [Suspect]
     Indication: ANGER
     Route: 048
  2. LEXAPRO [Concomitant]
     Route: 048
  3. LEXAPRO [Concomitant]
     Indication: ANXIETY
     Route: 048
  4. LUNESTA [Concomitant]
     Indication: SLEEP DISORDER
     Route: 048

REACTIONS (4)
  - BLOOD PRESSURE INCREASED [None]
  - CONFUSIONAL STATE [None]
  - HYPERHIDROSIS [None]
  - TREMOR [None]
